FAERS Safety Report 9375912 (Version 1)
Quarter: 2013Q2

REPORT INFORMATION
  Report Type: Spontaneous
  Country: US (occurrence: US)
  Receive Date: 20130628
  Receipt Date: 20130628
  Transmission Date: 20140414
  Serious: Yes (Other)
  Sender: FDA-Public Use
  Company Number: US-009507513-1306USA010936

PATIENT
  Age: 33 Year
  Sex: Male
  Weight: 150 kg

DRUGS (3)
  1. PRINIVIL [Suspect]
     Indication: HYPERTENSION
     Dosage: UNK
  2. AMLODIPINE [Concomitant]
     Indication: HYPERTENSION
  3. METOPROLOL [Concomitant]
     Indication: HYPERTENSION

REACTIONS (1)
  - Angioedema [Unknown]
